FAERS Safety Report 11553997 (Version 1)
Quarter: 2015Q3

REPORT INFORMATION
  Report Type: Spontaneous
  Country: GB (occurrence: GB)
  Receive Date: 20150925
  Receipt Date: 20150925
  Transmission Date: 20151125
  Serious: Yes (Other)
  Sender: FDA-Public Use
  Company Number: GB-TEVA-595144ACC

PATIENT
  Age: 89 Year
  Sex: Female
  Weight: 80 kg

DRUGS (10)
  1. CANDESARTAN [Concomitant]
     Active Substance: CANDESARTAN
     Dosage: 1 DOSAGE FORMS DAILY;
     Dates: start: 20150611, end: 20150618
  2. DICLOFENAC SODIUM. [Concomitant]
     Active Substance: DICLOFENAC SODIUM
     Dosage: 2 DOSAGE FORMS DAILY;
     Dates: start: 20150727, end: 20150802
  3. CO-AMILOFRUSE [Concomitant]
     Active Substance: AMILORIDE\FUROSEMIDE
     Dosage: 1 DOSAGE FORMS DAILY; IN THE MORNING
     Dates: start: 20130902, end: 20150626
  4. FERROUS GLUCONATE [Concomitant]
     Active Substance: FERROUS GLUCONATE
     Dates: start: 20090803
  5. NITROFURANTOIN. [Concomitant]
     Active Substance: NITROFURANTOIN
     Dosage: 2 DOSAGE FORMS DAILY;
     Dates: start: 20150826, end: 20150902
  6. LACTULOSE. [Concomitant]
     Active Substance: LACTULOSE
     Dosage: 30 ML DAILY;
     Dates: start: 20080925
  7. PARACETAMOL [Concomitant]
     Active Substance: ACETAMINOPHEN
     Dosage: TAKE 1 OR 2
     Dates: start: 20110228
  8. RAMIPRIL. [Suspect]
     Active Substance: RAMIPRIL
     Dates: start: 20150727
  9. BUPRENORPHINE. [Concomitant]
     Active Substance: BUPRENORPHINE
     Dosage: APPLY ONE AS DIRECTED
     Dates: start: 20150706, end: 20150720
  10. NAPROXEN. [Concomitant]
     Active Substance: NAPROXEN
     Dosage: 2 DOSAGE FORMS DAILY;
     Dates: start: 20150826, end: 20150902

REACTIONS (1)
  - Ageusia [Unknown]

NARRATIVE: CASE EVENT DATE: 20150910
